FAERS Safety Report 21299129 (Version 2)
Quarter: 2022Q3

REPORT INFORMATION
  Report Type: Spontaneous
  Country: CA (occurrence: CA)
  Receive Date: 20220906
  Receipt Date: 20220909
  Transmission Date: 20221027
  Serious: Yes (Hospitalization)
  Sender: FDA-Public Use
  Company Number: CA-PFIZER INC-PV202200050734

PATIENT
  Age: 58 Year
  Sex: Male

DRUGS (1)
  1. SUTENT [Suspect]
     Active Substance: SUNITINIB MALATE
     Dosage: 50 MG, CYCLIC, PO DAILY, TAKE 2 WEEKS ON, 1 WEEK OFF AND REPEAT
     Route: 048

REACTIONS (3)
  - Malaise [Unknown]
  - Neoplasm progression [Unknown]
  - Off label use [Unknown]
